FAERS Safety Report 10284676 (Version 2)
Quarter: 2014Q3

REPORT INFORMATION
  Report Type: Report from Study
  Country: KR (occurrence: KR)
  Receive Date: 20140708
  Receipt Date: 20140722
  Transmission Date: 20150326
  Serious: Yes (Hospitalization)
  Sender: FDA-Public Use
  Company Number: KR-SA-2014SA085909

PATIENT
  Sex: Male

DRUGS (1)
  1. LANTUS [Suspect]
     Active Substance: INSULIN GLARGINE
     Indication: DIABETES MELLITUS
     Dosage: DOSE:40 UNIT(S)
     Route: 058

REACTIONS (2)
  - Hospitalisation [Unknown]
  - Diabetes mellitus inadequate control [Recovered/Resolved]
